FAERS Safety Report 25729149 (Version 1)
Quarter: 2025Q3

REPORT INFORMATION
  Report Type: Spontaneous
  Country: GB (occurrence: GB)
  Receive Date: 20250827
  Receipt Date: 20250827
  Transmission Date: 20251021
  Serious: Yes (Other)
  Sender: BIOGEN
  Company Number: None

PATIENT
  Age: 38 Year
  Sex: Female

DRUGS (1)
  1. VUMERITY [Suspect]
     Active Substance: DIROXIMEL FUMARATE
     Indication: Product used for unknown indication
     Dosage: 462MG BD
     Route: 050
     Dates: start: 20231120, end: 20250811

REACTIONS (2)
  - Basal cell carcinoma [Recovered/Resolved]
  - Alopecia [Not Recovered/Not Resolved]
